FAERS Safety Report 12377501 (Version 1)
Quarter: 2016Q2

REPORT INFORMATION
  Report Type: Spontaneous
  Country: US (occurrence: US)
  Receive Date: 20160517
  Receipt Date: 20160517
  Transmission Date: 20160815
  Serious: No
  Sender: FDA-Public Use
  Company Number: US-JNJFOC-20160413759

PATIENT
  Age: 14 Month
  Sex: Male
  Weight: 11.79 kg

DRUGS (2)
  1. CHILDRENS MOTRIN [Suspect]
     Active Substance: IBUPROFEN
     Indication: PYREXIA
     Dosage: ONCE
     Route: 048
     Dates: start: 20160412, end: 20160412
  2. CHILDRENS MOTRIN [Suspect]
     Active Substance: IBUPROFEN
     Indication: ANALGESIC THERAPY
     Dosage: ONCE
     Route: 048
     Dates: start: 20160412, end: 20160412

REACTIONS (5)
  - Off label use [Recovered/Resolved]
  - Product quality issue [Unknown]
  - Incorrect dose administered [Recovered/Resolved]
  - Psychomotor hyperactivity [Recovered/Resolved]
  - Dyspnoea [Recovered/Resolved]

NARRATIVE: CASE EVENT DATE: 20160412
